FAERS Safety Report 5611895-8 (Version None)
Quarter: 2008Q1

REPORT INFORMATION
  Report Type: 
  Country: None (occurrence: None)
  Receive Date: 20080204
  Receipt Date: 20080125
  Transmission Date: 20080703
  Serious: Yes (Death, Other)
  Sender: FDA-Public Use
  Company Number: GB-BRISTOL-MYERS SQUIBB COMPANY-14062137

PATIENT
  Age: 65 Year
  Sex: Female

DRUGS (8)
  1. CYCLOPHOSPHAMIDE [Suspect]
     Indication: BREAST CANCER STAGE II
     Route: 042
  2. NEUPOGEN [Suspect]
     Indication: BREAST CANCER STAGE II
     Route: 058
  3. AMITRIPTYLINE HCL [Concomitant]
  4. CODEINE [Concomitant]
  5. IRON [Concomitant]
  6. LANSOPRAZOLE [Concomitant]
  7. EPIRUBICIN [Concomitant]
     Route: 042
     Dates: start: 20071005, end: 20071207
  8. FLUOROURACIL [Concomitant]
     Route: 042
     Dates: start: 20071005, end: 20071207

REACTIONS (2)
  - ACUTE RESPIRATORY DISTRESS SYNDROME [None]
  - VIRAL INFECTION [None]
